FAERS Safety Report 16163985 (Version 1)
Quarter: 2019Q2

REPORT INFORMATION
  Report Type: Spontaneous
  Country: JP (occurrence: JP)
  Receive Date: 20190405
  Receipt Date: 20190405
  Transmission Date: 20190711
  Serious: Yes (Hospitalization)
  Sender: FDA-Public Use
  Company Number: JP-MTPC-MTPC2019-0002989

PATIENT

DRUGS (3)
  1. RADICUT INJ. 30MG [Suspect]
     Active Substance: EDARAVONE
     Indication: AMYOTROPHIC LATERAL SCLEROSIS
     Dosage: UNK
     Route: 041
     Dates: start: 20181119
  2. RADICUT INJ. 30MG [Suspect]
     Active Substance: EDARAVONE
     Dosage: UNK
     Route: 041
     Dates: start: 20181217
  3. RADICUT INJ. 30MG [Suspect]
     Active Substance: EDARAVONE
     Dosage: UNK
     Route: 041
     Dates: start: 20190114

REACTIONS (1)
  - Dysphagia [Unknown]
